FAERS Safety Report 20226553 (Version 2)
Quarter: 2022Q1

REPORT INFORMATION
  Report Type: Spontaneous
  Country: TH (occurrence: TH)
  Receive Date: 20211224
  Receipt Date: 20220121
  Transmission Date: 20220423
  Serious: Yes (Other)
  Sender: FDA-Public Use
  Company Number: TH-NOVARTISPH-NVSC2021TH290291

PATIENT
  Age: 62 Year
  Sex: Female

DRUGS (1)
  1. ANASTROZOLE [Suspect]
     Active Substance: ANASTROZOLE
     Indication: Breast cancer female
     Dosage: UNK
     Route: 065
     Dates: start: 20130108, end: 20180123

REACTIONS (5)
  - Pneumonia [Unknown]
  - Invasive ductal breast carcinoma [Unknown]
  - Metastases to lung [Unknown]
  - Malignant pleural effusion [Unknown]
  - Breast mass [Unknown]

NARRATIVE: CASE EVENT DATE: 20201222
